FAERS Safety Report 13966920 (Version 1)
Quarter: 2017Q3

REPORT INFORMATION
  Report Type: Spontaneous
  Country: US (occurrence: US)
  Receive Date: 20170914
  Receipt Date: 20170914
  Transmission Date: 20171128
  Serious: No
  Sender: FDA-Public Use
  Company Number: US-HORIZON-PRE-0306-2017

PATIENT
  Sex: Male

DRUGS (6)
  1. NAPROXEN. [Concomitant]
     Active Substance: NAPROXEN
     Dates: start: 2008, end: 2017
  2. MELOXICAM. [Concomitant]
     Active Substance: MELOXICAM
     Dates: start: 2008, end: 2017
  3. HUMIRA [Concomitant]
     Active Substance: ADALIMUMAB
     Dates: start: 2008, end: 2009
  4. METHOTREXATE. [Concomitant]
     Active Substance: METHOTREXATE
     Dates: start: 2008, end: 2011
  5. PREDNISONE. [Suspect]
     Active Substance: PREDNISONE
     Indication: RHEUMATOID ARTHRITIS
     Dates: start: 2008, end: 2017
  6. ORENCIA [Concomitant]
     Active Substance: ABATACEPT
     Dates: start: 2009, end: 2016

REACTIONS (1)
  - Drug ineffective [Unknown]
